FAERS Safety Report 11994888 (Version 1)
Quarter: 2016Q1

REPORT INFORMATION
  Report Type: Spontaneous
  Country: US (occurrence: US)
  Receive Date: 20160203
  Receipt Date: 20160203
  Transmission Date: 20160526
  Serious: Yes (Death, Hospitalization, Other)
  Sender: FDA-Public Use
  Company Number: US-APOTEX-2015AP014845

PATIENT
  Age: 20 Year
  Sex: Male

DRUGS (1)
  1. ZIPRASIDONE HCL [Suspect]
     Active Substance: ZIPRASIDONE HYDROCHLORIDE
     Indication: AUTISM
     Route: 065

REACTIONS (6)
  - Neuroleptic malignant syndrome [Fatal]
  - Cardiac arrest [Fatal]
  - Hyperosmolar hyperglycaemic state [Unknown]
  - Respiratory failure [Unknown]
  - Shock [Unknown]
  - Hyperthermia [Fatal]
